FAERS Safety Report 9812099 (Version 1)
Quarter: 2014Q1

REPORT INFORMATION
  Report Type: Report from Study
  Country: CH (occurrence: CH)
  Receive Date: 20140111
  Receipt Date: 20140111
  Transmission Date: 20141002
  Serious: Yes (Hospitalization)
  Sender: FDA-Public Use
  Company Number: CH-ASTRAZENECA-2014SE00892

PATIENT
  Age: 26 Year
  Sex: Female

DRUGS (5)
  1. QUETIAPINE XR [Suspect]
     Dosage: 3 GR, 10 DF
     Route: 048
  2. VENLAFAXINE XR [Suspect]
     Route: 048
  3. LORAZEPAM [Suspect]
     Route: 048
  4. LEVOMEPROMAZINE [Suspect]
     Route: 048
  5. METAMIZOLE [Suspect]
     Route: 048

REACTIONS (5)
  - Overdose [Unknown]
  - Disturbance in attention [Unknown]
  - Bezoar [Unknown]
  - Tachycardia [Unknown]
  - Somnolence [Unknown]
